FAERS Safety Report 18649221 (Version 1)
Quarter: 2020Q4

REPORT INFORMATION
  Report Type: Spontaneous
  Country: US (occurrence: US)
  Receive Date: 20201221
  Receipt Date: 20201221
  Transmission Date: 20210114
  Serious: Yes (Other)
  Sender: FDA-Public Use
  Company Number: None

PATIENT
  Age: 59 Year
  Sex: Female

DRUGS (4)
  1. GABAPENTIN. [Concomitant]
     Active Substance: GABAPENTIN
  2. TEMOZOLOMIDE 140 MG CAPSULE TEVA [Suspect]
     Active Substance: TEMOZOLOMIDE
     Indication: RHEUMATOID ARTHRITIS
     Route: 048
     Dates: start: 20201111
  3. IRBESARTAN. [Concomitant]
     Active Substance: IRBESARTAN
  4. SINGULAIR [Concomitant]
     Active Substance: MONTELUKAST SODIUM

REACTIONS (2)
  - Brain neoplasm malignant [None]
  - Nausea [None]

NARRATIVE: CASE EVENT DATE: 20201219
